FAERS Safety Report 21483531 (Version 2)
Quarter: 2022Q4

REPORT INFORMATION
  Report Type: Report from Study
  Country: US (occurrence: US)
  Receive Date: 20221020
  Receipt Date: 20221126
  Transmission Date: 20230112
  Serious: No
  Sender: FDA-Public Use
  Company Number: US-ABBVIE-4158946

PATIENT
  Sex: Male

DRUGS (3)
  1. SKYRIZI [Suspect]
     Active Substance: RISANKIZUMAB-RZAA
     Indication: Psoriasis
     Dosage: 1ST LOADING DOSE
     Route: 058
     Dates: start: 20220901, end: 20220901
  2. SKYRIZI [Suspect]
     Active Substance: RISANKIZUMAB-RZAA
     Dosage: 2ND LOADING DOSE
     Route: 058
     Dates: start: 20221001, end: 20221001
  3. SKYRIZI [Suspect]
     Active Substance: RISANKIZUMAB-RZAA
     Dosage: MAINTANANCE DOSE
     Route: 058
     Dates: start: 2022

REACTIONS (5)
  - Dizziness [Recovered/Resolved]
  - Hyperhidrosis [Recovering/Resolving]
  - Hyperhidrosis [Recovered/Resolved]
  - Pain [Unknown]
  - Intentional product misuse [Unknown]

NARRATIVE: CASE EVENT DATE: 20220101
